FAERS Safety Report 5395525-9 (Version None)
Quarter: 2007Q3

REPORT INFORMATION
  Report Type: 
  Country: None (occurrence: None)
  Receive Date: 20070724
  Receipt Date: 20070713
  Transmission Date: 20080115
  Serious: Yes (Life-Threatening)
  Sender: FDA-Public Use
  Company Number: RO-ASTRAZENECA-2007SE03989

PATIENT
  Age: 18 Year
  Sex: Female

DRUGS (1)
  1. MARCAINE [Suspect]
     Indication: APPENDICECTOMY
     Route: 037
     Dates: start: 20070627, end: 20070627

REACTIONS (3)
  - BRADYCARDIA [None]
  - DRUG EFFECT DECREASED [None]
  - HYPOTENSION [None]
